FAERS Safety Report 5655359-4 (Version None)
Quarter: 2008Q1

REPORT INFORMATION
  Report Type: 
  Country: None (occurrence: None)
  Receive Date: 20080307
  Receipt Date: 20080305
  Transmission Date: 20080703
  Serious: Yes (Hospitalization)
  Sender: FDA-Public Use
  Company Number: AU-ASTRAZENECA-2008AP01723

PATIENT
  Age: 89 Year
  Sex: Male

DRUGS (9)
  1. ESOMEPRAZOLE MAGNESIUM TRIHYDRATE [Suspect]
     Route: 048
     Dates: end: 20070423
  2. EXELON [Suspect]
     Indication: PSYCHOTIC DISORDER
     Dates: start: 20070411, end: 20070423
  3. ASPIRIN [Concomitant]
  4. CLINDAMYCIN HYDROCHLORIDE [Concomitant]
     Dates: start: 20070331, end: 20070405
  5. LERCANIDIPINE HYDROCHLORIDE [Concomitant]
  6. MS CONTIN [Concomitant]
  7. ACETAMINOPHEN [Concomitant]
  8. PERINDOPRIL [Concomitant]
  9. TEMAZEPAM [Concomitant]

REACTIONS (3)
  - DRY SKIN [None]
  - PRURITUS [None]
  - RASH [None]
